FAERS Safety Report 15483562 (Version 1)
Quarter: 2018Q4

REPORT INFORMATION
  Report Type: Spontaneous
  Country: US (occurrence: US)
  Receive Date: 20181003
  Receipt Date: 20181003
  Transmission Date: 20190205
  Serious: Yes (Hospitalization)
  Sender: FDA-Public Use
  Company Number: None

PATIENT
  Age: 20 Year
  Sex: Female

DRUGS (11)
  1. TACROLIMUS, 0.5 MG [Suspect]
     Active Substance: TACROLIMUS
     Indication: RENAL TRANSPLANT
     Route: 048
     Dates: start: 20180509
  2. ATOVAQUONE. [Concomitant]
     Active Substance: ATOVAQUONE
  3. TACROLIMUS, 1MG [Suspect]
     Active Substance: TACROLIMUS
     Indication: RENAL TRANSPLANT
     Route: 048
     Dates: start: 20180509
  4. COENZYME [Concomitant]
     Active Substance: UBIDECARENONE
  5. VITAMIN E [Concomitant]
     Active Substance: .ALPHA.-TOCOPHEROL
  6. ARANESP [Concomitant]
     Active Substance: DARBEPOETIN ALFA
  7. AMOXICILLIN. [Concomitant]
     Active Substance: AMOXICILLIN
  8. ZOFRAN [Concomitant]
     Active Substance: ONDANSETRON HYDROCHLORIDE
  9. MYCOPHENOLATE [Concomitant]
     Active Substance: MYCOPHENOLIC ACID
  10. PREDNISONE. [Concomitant]
     Active Substance: PREDNISONE
  11. RANITIDINE. [Concomitant]
     Active Substance: RANITIDINE

REACTIONS (1)
  - Pyrexia [None]

NARRATIVE: CASE EVENT DATE: 20181001
